FAERS Safety Report 9457169 (Version 1)
Quarter: 2013Q3

REPORT INFORMATION
  Report Type: Spontaneous
  Country: US (occurrence: US)
  Receive Date: 20130814
  Receipt Date: 20130814
  Transmission Date: 20140515
  Serious: No
  Sender: FDA-Public Use
  Company Number: US-BIOGENIDEC-2013BI075271

PATIENT
  Age: 35 Year
  Sex: Male

DRUGS (1)
  1. TYSABRI [Suspect]
     Indication: MULTIPLE SCLEROSIS
     Route: 042
     Dates: start: 20120504, end: 20130424

REACTIONS (4)
  - Diplopia [Not Recovered/Not Resolved]
  - Multiple sclerosis [Unknown]
  - Incontinence [Unknown]
  - Paraesthesia [Unknown]
